FAERS Safety Report 5212567-4 (Version None)
Quarter: 2007Q1

REPORT INFORMATION
  Report Type: 
  Country: None (occurrence: None)
  Receive Date: 20070118
  Receipt Date: 20070108
  Transmission Date: 20070707
  Serious: Yes (Other)
  Sender: FDA-Public Use
  Company Number: US-PFIZER INC-2006142067

PATIENT
  Sex: Male
  Weight: 61 kg

DRUGS (3)
  1. LYRICA [Suspect]
     Indication: CONVULSION
     Dates: start: 20061006, end: 20061001
  2. CARBATROL [Concomitant]
  3. ZONEGRAN [Concomitant]

REACTIONS (3)
  - CONVULSION [None]
  - EMOTIONAL DISTRESS [None]
  - URINARY INCONTINENCE [None]
